FAERS Safety Report 4819184-6 (Version None)
Quarter: 2005Q4

REPORT INFORMATION
  Report Type: 
  Country: None (occurrence: None)
  Receive Date: 20051103
  Receipt Date: 20051028
  Transmission Date: 20060501
  Serious: Yes (Other)
  Sender: FDA-Public Use
  Company Number: US-GLAXOSMITHKLINE-A0580083A

PATIENT
  Sex: Male

DRUGS (5)
  1. AVANDAMET [Suspect]
     Dosage: 1TAB TWICE PER DAY
     Route: 048
     Dates: start: 20050101
  2. LOTENSIN [Concomitant]
  3. LIPITOR [Concomitant]
  4. PREVACID [Concomitant]
  5. ASPIRIN [Concomitant]

REACTIONS (1)
  - URINARY INCONTINENCE [None]
